FAERS Safety Report 11776907 (Version 1)
Quarter: 2015Q4

REPORT INFORMATION
  Report Type: Spontaneous
  Country: US (occurrence: None)
  Receive Date: 20151124
  Receipt Date: 20151124
  Transmission Date: 20160304
  Serious: Yes (Other)
  Sender: FDA-Public Use
  Company Number: None

PATIENT
  Age: 65 Year
  Sex: Male
  Weight: 87.09 kg

DRUGS (6)
  1. FINASTERIDE. [Concomitant]
     Active Substance: FINASTERIDE
  2. DULAGLUTIDE. [Suspect]
     Active Substance: DULAGLUTIDE
     Indication: METABOLIC SYNDROME
     Route: 058
     Dates: start: 20150806, end: 20151112
  3. ASA [Concomitant]
     Active Substance: ASPIRIN
  4. FUROSEMDIE [Concomitant]
  5. METFORMIN [Concomitant]
     Active Substance: METFORMIN HYDROCHLORIDE
  6. DULAGLUTIDE. [Suspect]
     Active Substance: DULAGLUTIDE
     Indication: INSULIN RESISTANCE
     Route: 058
     Dates: start: 20150806, end: 20151112

REACTIONS (3)
  - Myalgia [None]
  - Arthralgia [None]
  - Hypokinesia [None]

NARRATIVE: CASE EVENT DATE: 20151116
